FAERS Safety Report 18488940 (Version 3)
Quarter: 2020Q4

REPORT INFORMATION
  Report Type: Spontaneous
  Country: US (occurrence: US)
  Receive Date: 20201111
  Receipt Date: 20201223
  Transmission Date: 20210114
  Serious: No
  Sender: FDA-Public Use
  Company Number: US-NEUROCRINE BIOSCIENCES INC.-2020NBI04013

PATIENT
  Age: 75 Year
  Sex: Female

DRUGS (25)
  1. MOXIFLOXACIN. [Concomitant]
     Active Substance: MOXIFLOXACIN
     Route: 048
     Dates: start: 20201013
  2. PREDNISONE. [Concomitant]
     Active Substance: PREDNISONE
     Route: 048
  3. PREVACID [Concomitant]
     Active Substance: LANSOPRAZOLE
     Route: 048
     Dates: start: 20200324
  4. PROMETHAZINE-DM [Concomitant]
     Dosage: 6.25MG-15MG/5ML AS NEEDED
     Route: 048
     Dates: start: 20201013
  5. PERCOCET [Concomitant]
     Active Substance: ACETAMINOPHEN\OXYCODONE HYDROCHLORIDE
     Dosage: 10MG/325MG, AS NEEDED
     Route: 048
     Dates: start: 20190912
  6. OXYGEN VARIABLE INHALATION [Concomitant]
     Dosage: CONTINUOS OXYGEN BY NASAL CANNULA. 3-4 LPM
     Dates: start: 20190912
  7. MORPHINE [Concomitant]
     Active Substance: MORPHINE
     Dosage: AS NEEDED
     Route: 048
     Dates: start: 20190131
  8. MYRBETRIQ [Concomitant]
     Active Substance: MIRABEGRON
     Route: 048
     Dates: start: 20200923
  9. XANAX [Concomitant]
     Active Substance: ALPRAZOLAM
     Dosage: 1/2 TO 1 TABLET
     Route: 048
     Dates: start: 20201017
  10. BYSTOLIC [Concomitant]
     Active Substance: NEBIVOLOL HYDROCHLORIDE
     Route: 048
     Dates: start: 20060609
  11. KETOCONAZOLE. [Concomitant]
     Active Substance: KETOCONAZOLE
     Dosage: APPLY TO AFFECTED AREA(S) LATHER, LEAVE IN PLACE FOR 5 MIN THEN RINSE WITH WATER
     Route: 061
     Dates: start: 20200818
  12. LOMOTIL [Concomitant]
     Active Substance: ATROPINE SULFATE\DIPHENOXYLATE HYDROCHLORIDE
     Route: 048
     Dates: start: 20190131
  13. MACROBID [Concomitant]
     Active Substance: NITROFURANTOIN\NITROFURANTOIN MONOHYDRATE
     Dosage: WITH FOOD
     Route: 048
     Dates: start: 20201009
  14. MIRAPEX [Concomitant]
     Active Substance: PRAMIPEXOLE DIHYDROCHLORIDE
     Dosage: 2-3 HOURS BEFORE BEDTIME
     Route: 048
     Dates: start: 20201005
  15. VENTOLIN HFA [Concomitant]
     Active Substance: ALBUTEROL SULFATE
     Dosage: INHALE 2 PUFF, EVERY 4-6 HOURS AS NEEDED
     Dates: start: 20190131
  16. OMEGA 3-DHA-EPA-FISH OIL [Concomitant]
     Route: 048
  17. INGREZZA [Suspect]
     Active Substance: VALBENAZINE
  18. MIRAPEX [Concomitant]
     Active Substance: PRAMIPEXOLE DIHYDROCHLORIDE
     Dosage: 2-3 HOURS BEFORE BEDTIME
     Route: 048
  19. LISINOPRIL. [Concomitant]
     Active Substance: LISINOPRIL
     Route: 048
     Dates: start: 20190131
  20. INGREZZA [Suspect]
     Active Substance: VALBENAZINE
     Indication: TARDIVE DYSKINESIA
     Route: 048
     Dates: start: 20201025
  21. SOMA [Concomitant]
     Active Substance: CARISOPRODOL
     Dosage: AT BEDTIME
     Route: 048
     Dates: start: 20191108
  22. OXYGEN VARIABLE INHALATION [Concomitant]
     Dosage: 3-4 L QD;
     Dates: start: 20190131
  23. PREDNISONE. [Concomitant]
     Active Substance: PREDNISONE
     Route: 048
     Dates: start: 20201013
  24. PREDNISONE. [Concomitant]
     Active Substance: PREDNISONE
     Route: 048
  25. TRELEGY ELLIPTA [Concomitant]
     Active Substance: FLUTICASONE FUROATE\UMECLIDINIUM BROMIDE\VILANTEROL TRIFENATATE
     Dosage: 100 MCG-62.5 MCG-25 MCG POWDER FOR INHALATION
     Dates: start: 20200622

REACTIONS (3)
  - Clostridium difficile infection [Unknown]
  - Drug ineffective [Unknown]
  - Headache [Recovered/Resolved]

NARRATIVE: CASE EVENT DATE: 2020
